FAERS Safety Report 8798393 (Version 1)
Quarter: 2012Q4

REPORT INFORMATION
  Report Type: 
  Country: GB (occurrence: GB)
  Receive Date: 20120920
  Receipt Date: 20120920
  Transmission Date: 20130627
  Serious: Yes (Other)
  Sender: FDA-Public Use
  Company Number: GB-ASTRAZENECA-2012SE71550

PATIENT
  Age: 63 Year
  Sex: Male

DRUGS (4)
  1. SYMBICORT [Suspect]
     Indication: CHRONIC OBSTRUCTIVE PULMONARY DISEASE
     Dosage: 100/6 MCG, UNKNOWN
     Route: 055
     Dates: start: 201112
  2. CLARITHROMYCIN [Interacting]
     Indication: CHRONIC OBSTRUCTIVE PULMONARY DISEASE
     Route: 048
  3. ASPIRIN [Concomitant]
     Indication: BUNDLE BRANCH BLOCK LEFT
  4. KEPPRA [Concomitant]
     Indication: EPILEPSY
     Dates: start: 2002

REACTIONS (6)
  - Drug interaction [Unknown]
  - Eyelid ptosis [Unknown]
  - Hypoaesthesia [Unknown]
  - Myalgia [Unknown]
  - Feeling abnormal [Unknown]
  - Somnolence [Unknown]
